FAERS Safety Report 7331744-X (Version None)
Quarter: 2011Q1

REPORT INFORMATION
  Report Type: 
  Country: None (occurrence: None)
  Receive Date: 20110304
  Receipt Date: 20110228
  Transmission Date: 20110831
  Serious: Yes (Death)
  Sender: FDA-Public Use
  Company Number: IT-SANOFI-AVENTIS-2009SA001746

PATIENT
  Age: 56 Year
  Sex: Female
  Weight: 91 kg

DRUGS (14)
  1. PARACODINA [Concomitant]
     Dates: start: 20090819
  2. TORSEMIDE [Concomitant]
     Dates: start: 20090915
  3. EPREX /UNK/ [Concomitant]
     Dates: start: 20091102
  4. TRIMETON [Concomitant]
     Dates: start: 20091102, end: 20091102
  5. PLACEBO [Suspect]
     Route: 042
     Dates: start: 20090928, end: 20090928
  6. NISOLID [Concomitant]
     Dates: start: 20090924
  7. LANSOX [Concomitant]
     Dates: start: 20090819
  8. CONTRAMAL [Concomitant]
     Dates: start: 20090819
  9. UGUROL [Concomitant]
     Dates: start: 20090713
  10. DELTACORTENE [Concomitant]
     Dates: start: 20090925
  11. TAREG [Concomitant]
     Dates: start: 20090915
  12. PLACEBO [Suspect]
     Indication: NON-SMALL CELL LUNG CANCER
     Route: 042
     Dates: start: 20091102, end: 20091102
  13. DOCETAXEL [Suspect]
     Indication: NON-SMALL CELL LUNG CANCER
     Route: 042
     Dates: start: 20091102, end: 20091102
  14. DOCETAXEL [Suspect]
     Route: 042
     Dates: start: 20090928, end: 20090928

REACTIONS (1)
  - HAEMOPTYSIS [None]
